FAERS Safety Report 15132655 (Version 1)
Quarter: 2018Q3

REPORT INFORMATION
  Report Type: Spontaneous
  Country: US (occurrence: US)
  Receive Date: 20180712
  Receipt Date: 20180712
  Transmission Date: 20181010
  Serious: No
  Sender: FDA-Public Use
  Company Number: US-SUN PHARMACEUTICAL INDUSTRIES LTD-2017US-151198

PATIENT
  Age: 16 Year
  Sex: Male

DRUGS (1)
  1. ABSORICA [Suspect]
     Active Substance: ISOTRETINOIN
     Indication: ACNE
     Dosage: 20 MG, BID
     Route: 065
     Dates: start: 20170707

REACTIONS (7)
  - Lip discolouration [Unknown]
  - Oral discomfort [Unknown]
  - Middle insomnia [Unknown]
  - Lip dry [Unknown]
  - Cheilitis [Unknown]
  - Lip haemorrhage [Unknown]
  - Lip exfoliation [Unknown]

NARRATIVE: CASE EVENT DATE: 2017
